FAERS Safety Report 17028406 (Version 1)
Quarter: 2019Q4

REPORT INFORMATION
  Report Type: Spontaneous
  Country: US (occurrence: US)
  Receive Date: 20191010
  Receipt Date: 20191010
  Transmission Date: 20200122
  Serious: Yes (Hospitalization)
  Sender: FDA-Public Use
  Company Number: None

PATIENT
  Age: 66 Year
  Sex: Female

DRUGS (27)
  1. CALCIUM/D [Concomitant]
  2. EPIPEN [Concomitant]
     Active Substance: EPINEPHRINE
  3. ISOSORB [Concomitant]
  4. LIDOCANE [Concomitant]
     Active Substance: LIDOCAINE
  5. ADVAIR HFA [Concomitant]
     Active Substance: FLUTICASONE PROPIONATE\SALMETEROL XINAFOATE
  6. INSULIN [Concomitant]
     Active Substance: INSULIN NOS
  7. METHIMAZOLE. [Concomitant]
     Active Substance: METHIMAZOLE
  8. PROTONIX [Concomitant]
     Active Substance: PANTOPRAZOLE SODIUM
  9. WARFARIN [Concomitant]
     Active Substance: WARFARIN
  10. REFRESH TEAR  DROPS [Concomitant]
  11. BREO ELLIPTA [Concomitant]
     Active Substance: FLUTICASONE FUROATE\VILANTEROL TRIFENATATE
  12. ENOXAPARIN [Concomitant]
     Active Substance: ENOXAPARIN
  13. MEGNECINO [Concomitant]
  14. NYSTATIN. [Concomitant]
     Active Substance: NYSTATIN
  15. VENTOLIN [Concomitant]
     Active Substance: ALBUTEROL SULFATE
  16. TRIAMCINOLON [Concomitant]
  17. ZYRTEC [Concomitant]
     Active Substance: CETIRIZINE HYDROCHLORIDE
  18. AUGMENTIN [Concomitant]
     Active Substance: AMOXICILLIN\CLAVULANATE POTASSIUM
  19. PREDNISONE. [Concomitant]
     Active Substance: PREDNISONE
  20. ROSUVASTATIN. [Concomitant]
     Active Substance: ROSUVASTATIN
  21. SINGULAIR [Concomitant]
     Active Substance: MONTELUKAST SODIUM
  22. DILTIAZEM. [Concomitant]
     Active Substance: DILTIAZEM
  23. FLUTICASONE. [Concomitant]
     Active Substance: FLUTICASONE
  24. LISINOPRIL. [Concomitant]
     Active Substance: LISINOPRIL
  25. XOLAIR [Suspect]
     Active Substance: OMALIZUMAB
     Indication: ASTHMA
     Dosage: ?          OTHER FREQUENCY:EVERY 2 WEEKS ;?
     Route: 058
     Dates: start: 20150507
  26. AMOXICILLIN. [Concomitant]
     Active Substance: AMOXICILLIN
  27. VITAMIN D3 [Concomitant]
     Active Substance: CHOLECALCIFEROL

REACTIONS (1)
  - Asthma [None]
